FAERS Safety Report 4352859-4 (Version None)
Quarter: 2004Q2

REPORT INFORMATION
  Report Type: 
  Country: None (occurrence: None)
  Receive Date: 20040429
  Receipt Date: 20040422
  Transmission Date: 20050107
  Serious: Yes (Death)
  Sender: FDA-Public Use
  Company Number: 2004UW08216

PATIENT

DRUGS (1)
  1. XYLOCAINE [Suspect]
     Indication: PLASTIC SURGERY
     Dosage: 20 MG/KG SQ
     Route: 058

REACTIONS (1)
  - PRESCRIBED OVERDOSE [None]
